FAERS Safety Report 17105687 (Version 3)
Quarter: 2020Q1

REPORT INFORMATION
  Report Type: Spontaneous
  Country: US (occurrence: US)
  Receive Date: 20191203
  Receipt Date: 20200326
  Transmission Date: 20200409
  Serious: Yes (Hospitalization, Other)
  Sender: FDA-Public Use
  Company Number: US-PFIZER INC-2019516186

PATIENT
  Age: 72 Year
  Sex: Male
  Weight: 89.43 kg

DRUGS (13)
  1. ACETAMINOPHEN. [Concomitant]
     Active Substance: ACETAMINOPHEN
     Dosage: 1000 MG, AS NEEDED (TAKE 2 TABLET BY ORAL ROUTE TWICE DAILY AS NEEDED)
     Route: 048
  2. METHOTREXATE SODIUM. [Concomitant]
     Active Substance: METHOTREXATE SODIUM
     Dosage: 15 MG, WEEKLY
     Route: 048
  3. XELJANZ XR [Suspect]
     Active Substance: TOFACITINIB CITRATE
     Indication: RHEUMATOID ARTHRITIS
     Dosage: 11 MG, 1X/DAY (TAKE 1 TABLET )
     Route: 048
     Dates: start: 20170219, end: 20190925
  4. XELJANZ XR [Suspect]
     Active Substance: TOFACITINIB CITRATE
     Dosage: UNK
     Dates: start: 201704
  5. COUMADIN [Concomitant]
     Active Substance: WARFARIN SODIUM
     Dosage: 5 MG, AS NEEDED (TAKE AS DIRECTED)
  6. LISINOPRIL. [Concomitant]
     Active Substance: LISINOPRIL
     Dosage: 2.5 MG, 1X/DAY
     Route: 048
     Dates: start: 20191029
  7. COUMADIN [Suspect]
     Active Substance: WARFARIN SODIUM
     Indication: RHEUMATOID ARTHRITIS
     Dosage: UNK
  8. CALCIUM 600 + D3 PLUS MINERALS [Concomitant]
     Dosage: 600 MG, DAILY(TAKE 1 TABLET DAILY )
  9. REFRESH-TEARS [Concomitant]
     Dosage: 0.5 %, THREE OR FOUR TIMES PER DAY
     Dates: start: 20190617
  10. DILTIAZEM. [Concomitant]
     Active Substance: DILTIAZEM
     Dosage: 180 MG, 1X/DAY
     Route: 048
     Dates: start: 20191112
  11. OMEPRAZOLE. [Concomitant]
     Active Substance: OMEPRAZOLE
     Dosage: 20 MG, 1X/DAY (TAKE 1 CAPSULE BY ORAL ROUTE EVERY DAY BEFORE A MEAL)
     Route: 048
  12. FUROSEMIDE. [Concomitant]
     Active Substance: FUROSEMIDE
     Dosage: 80 MG, 1X/DAY
     Route: 048
  13. FOLIC ACID. [Concomitant]
     Active Substance: FOLIC ACID
     Dosage: 1 MG, 1X/DAY
     Route: 048
     Dates: start: 20191029

REACTIONS (11)
  - Myalgia [Unknown]
  - Hernia [Unknown]
  - Fatigue [Unknown]
  - Decreased appetite [Unknown]
  - Sleep disorder [Unknown]
  - Dyspnoea [Unknown]
  - Muscular weakness [Unknown]
  - Limb injury [Unknown]
  - Upper limb fracture [Unknown]
  - Pulmonary embolism [Recovering/Resolving]
  - Fall [Unknown]

NARRATIVE: CASE EVENT DATE: 201703
